FAERS Safety Report 7109846-2 (Version None)
Quarter: 2010Q4

REPORT INFORMATION
  Report Type: 
  Country: None (occurrence: None)
  Receive Date: 20101118
  Receipt Date: 20101108
  Transmission Date: 20110411
  Serious: Yes (Other)
  Sender: FDA-Public Use
  Company Number: DE-JNJFOC-20101102075

PATIENT
  Age: 88 Year
  Sex: Male
  Weight: 68.2 kg

DRUGS (14)
  1. RISPERDAL [Suspect]
     Indication: ILL-DEFINED DISORDER
     Route: 048
     Dates: start: 20090818, end: 20090906
  2. RISPERDAL [Suspect]
     Route: 048
     Dates: start: 20090818, end: 20090906
  3. RISPERDAL [Suspect]
     Route: 048
     Dates: start: 20090818, end: 20090906
  4. RISPERDAL [Suspect]
     Route: 048
     Dates: start: 20090818, end: 20090906
  5. DOMINAL [Suspect]
     Indication: ILL-DEFINED DISORDER
     Route: 048
     Dates: start: 20090818, end: 20090914
  6. DOMINAL [Suspect]
     Route: 048
     Dates: start: 20090818, end: 20090914
  7. DOMINAL [Suspect]
     Route: 048
     Dates: start: 20090818, end: 20090914
  8. DOMINAL [Suspect]
     Route: 048
     Dates: start: 20090818, end: 20090914
  9. FUROSEMID [Concomitant]
     Route: 048
  10. ENALAPRIL MALEATE [Concomitant]
     Route: 048
  11. CLOPIDOGREL [Concomitant]
     Route: 048
  12. SIMVASTATIN [Concomitant]
     Route: 048
  13. ISOSORBIDE DINITRATE [Concomitant]
     Route: 048
  14. OMEPRAZOLE [Concomitant]
     Route: 048

REACTIONS (2)
  - ELECTROCARDIOGRAM QT PROLONGED [None]
  - GLOMERULAR FILTRATION RATE DECREASED [None]
